FAERS Safety Report 6656736-5 (Version None)
Quarter: 2010Q1

REPORT INFORMATION
  Report Type: 
  Country: None (occurrence: None)
  Receive Date: 20100324
  Receipt Date: 20100309
  Transmission Date: 20100710
  Serious: Yes (Hospitalization)
  Sender: FDA-Public Use
  Company Number: A-NJ2010-34743

PATIENT
  Age: 77 Year
  Sex: Female

DRUGS (1)
  1. TRACLEER [Suspect]
     Indication: PULMONARY ARTERIAL HYPERTENSION
     Dosage: ORAL
     Route: 048
     Dates: start: 20080625

REACTIONS (5)
  - DEHYDRATION [None]
  - EXERCISE TOLERANCE DECREASED [None]
  - HEART RATE DECREASED [None]
  - MYALGIA [None]
  - VISION BLURRED [None]
